FAERS Safety Report 9696744 (Version 1)
Quarter: 2013Q4

REPORT INFORMATION
  Report Type: Spontaneous
  Country: US (occurrence: US)
  Receive Date: 20131119
  Receipt Date: 20131119
  Transmission Date: 20140711
  Serious: No
  Sender: FDA-Public Use
  Company Number: US-GILEAD-2007-0014452

PATIENT
  Sex: Female
  Weight: 55.79 kg

DRUGS (7)
  1. LETAIRIS [Suspect]
     Indication: PULMONARY ARTERIAL HYPERTENSION
     Route: 048
  2. HEPARIN [Concomitant]
     Route: 040
  3. FLOLAN [Concomitant]
     Dosage: 3 VIALS CONTINUOUS IV
     Route: 041
  4. ACTONEL [Concomitant]
     Route: 048
  5. ASPIRIN [Concomitant]
     Route: 048
  6. LANOXIN [Concomitant]
     Route: 048
  7. PREMARIN [Concomitant]
     Route: 048

REACTIONS (1)
  - Oedema [None]
